FAERS Safety Report 14519500 (Version 1)
Quarter: 2018Q1

REPORT INFORMATION
  Report Type: Spontaneous
  Country: US (occurrence: US)
  Receive Date: 20180212
  Receipt Date: 20180212
  Transmission Date: 20180509
  Serious: Yes (Other)
  Sender: FDA-Public Use
  Company Number: US-INCYTE CORPORATION-2018IN001139

PATIENT

DRUGS (2)
  1. PRACINOSTAT [Suspect]
     Active Substance: PRACINOSTAT
     Indication: MYELOFIBROSIS
     Dosage: 60 MG, QW3
     Route: 065
  2. JAKAFI [Suspect]
     Active Substance: RUXOLITINIB
     Indication: MYELOFIBROSIS
     Dosage: 3 CYCLES
     Route: 065

REACTIONS (1)
  - Thrombocytopenia [Unknown]
